FAERS Safety Report 8178391-8 (Version None)
Quarter: 2012Q1

REPORT INFORMATION
  Report Type: 
  Country: None (occurrence: None)
  Receive Date: 20120301
  Receipt Date: 20120227
  Transmission Date: 20120608
  Serious: Yes (Other)
  Sender: FDA-Public Use
  Company Number: US-PFIZER INC-2012051707

PATIENT
  Sex: Female
  Weight: 68.027 kg

DRUGS (1)
  1. PREPARATION H COOLING [Suspect]
     Indication: HAEMORRHOIDS
     Dosage: UNK

REACTIONS (3)
  - HAEMORRHAGE [None]
  - PRURITUS [None]
  - BURNING SENSATION [None]
